FAERS Safety Report 5615594-8 (Version None)
Quarter: 2008Q1

REPORT INFORMATION
  Report Type: 
  Country: None (occurrence: None)
  Receive Date: 20080205
  Receipt Date: 20080205
  Transmission Date: 20080703
  Serious: No
  Sender: FDA-Public Use
  Company Number: None

PATIENT
  Age: 38 Year
  Sex: Female
  Weight: 74.8435 kg

DRUGS (2)
  1. LEVAQUIN [Suspect]
     Indication: INFLUENZA
     Dosage: 750MG ONCE DAILY PO
     Route: 048
     Dates: start: 20080118, end: 20080125
  2. LEVAQUIN [Suspect]
     Indication: SINUSITIS
     Dosage: 750MG ONCE DAILY PO
     Route: 048
     Dates: start: 20080118, end: 20080125

REACTIONS (6)
  - ARTHRALGIA [None]
  - ASTHENIA [None]
  - HYPOAESTHESIA [None]
  - NAUSEA [None]
  - PAIN IN EXTREMITY [None]
  - PARAESTHESIA [None]
